FAERS Safety Report 5246003-9 (Version None)
Quarter: 2007Q1

REPORT INFORMATION
  Report Type: 
  Country: None (occurrence: None)
  Receive Date: 20070220
  Receipt Date: 20070202
  Transmission Date: 20070707
  Serious: Yes (Disabling)
  Sender: FDA-Public Use
  Company Number: 2007RR-05665

PATIENT
  Age: 86 Year
  Sex: Male

DRUGS (1)
  1. METFORMIN BASICS 500MG (METFORMIN HYDROCHLORIDE) UNKNOWN [Suspect]
     Dosage: 500 MG, QD, ORAL
     Route: 048
     Dates: start: 20031001, end: 20060601

REACTIONS (2)
  - BRONCHOPNEUMONIA [None]
  - PULMONARY FIBROSIS [None]
